FAERS Safety Report 6841836-7 (Version None)
Quarter: 2010Q3

REPORT INFORMATION
  Report Type: 
  Country: None (occurrence: None)
  Receive Date: 20100714
  Receipt Date: 20070718
  Transmission Date: 20110219
  Serious: No
  Sender: FDA-Public Use
  Company Number: US-PFIZER INC-2007059926

PATIENT
  Sex: Female

DRUGS (6)
  1. CHANTIX [Suspect]
     Indication: SMOKING CESSATION THERAPY
     Dates: start: 20070301
  2. DYAZIDE [Concomitant]
  3. OSCAL [Concomitant]
  4. COMBIVENT [Concomitant]
     Indication: RESPIRATORY DISORDER
  5. ADVAIR DISKUS 100/50 [Concomitant]
     Indication: RESPIRATORY DISORDER
  6. EVISTA [Concomitant]
     Indication: OSTEOPOROSIS

REACTIONS (1)
  - NAUSEA [None]
